FAERS Safety Report 13802924 (Version 1)
Quarter: 2017Q3

REPORT INFORMATION
  Report Type: Spontaneous
  Country: US (occurrence: US)
  Receive Date: 20170728
  Receipt Date: 20170728
  Transmission Date: 20171127
  Serious: Yes (Congenital Anomaly)
  Sender: FDA-Public Use
  Company Number: US-ABBVIE-17K-163-2046430-00

PATIENT
  Age: 0 Day
  Sex: Male
  Weight: 3.05 kg

DRUGS (2)
  1. HUMIRA [Suspect]
     Active Substance: ADALIMUMAB
     Indication: MATERNAL EXPOSURE TIMING UNSPECIFIED
     Route: 064
  2. HUMIRA [Suspect]
     Active Substance: ADALIMUMAB
     Route: 063

REACTIONS (6)
  - Exposure during breast feeding [Unknown]
  - Foetal exposure during pregnancy [Unknown]
  - Hypotonia [Recovering/Resolving]
  - Drug level increased [Unknown]
  - Blood glucose decreased [Recovered/Resolved]
  - Talipes [Recovering/Resolving]

NARRATIVE: CASE EVENT DATE: 20170412
